FAERS Safety Report 25117317 (Version 1)
Quarter: 2025Q1

REPORT INFORMATION
  Report Type: Spontaneous
  Country: JP (occurrence: JP)
  Receive Date: 20250325
  Receipt Date: 20250325
  Transmission Date: 20250409
  Serious: Yes (Other)
  Sender: ASTELLAS
  Company Number: JP-ASTELLAS-2023JP002225

PATIENT
  Age: 69 Year
  Sex: Female
  Weight: 64 kg

DRUGS (9)
  1. XOSPATA [Suspect]
     Active Substance: GILTERITINIB
     Indication: Acute myelomonocytic leukaemia
     Route: 048
     Dates: start: 20221222
  2. METHOTREXATE [Suspect]
     Active Substance: METHOTREXATE
     Indication: Central nervous system leukaemia
     Dosage: 15 MG/BODY
     Route: 029
  3. METHOTREXATE [Suspect]
     Active Substance: METHOTREXATE
     Dosage: 15 MG/BODY
     Route: 029
  4. CYTARABINE [Concomitant]
     Active Substance: CYTARABINE
     Indication: Central nervous system leukaemia
     Dosage: 40 MG/BODY
     Route: 029
  5. CYTARABINE [Concomitant]
     Active Substance: CYTARABINE
     Indication: Acute myelomonocytic leukaemia
     Route: 065
  6. PREDNISOLONE [Concomitant]
     Active Substance: PREDNISOLONE
     Indication: Central nervous system leukaemia
     Dosage: 10 MG/BODY
     Route: 029
  7. PREDNISOLONE [Concomitant]
     Active Substance: PREDNISOLONE
     Dosage: 10 MG/BODY
     Route: 029
  8. ACLARUBICIN [Concomitant]
     Active Substance: ACLARUBICIN
     Indication: Acute myelomonocytic leukaemia
     Route: 065
  9. FILGRASTIM [Concomitant]
     Active Substance: FILGRASTIM
     Indication: Acute myelomonocytic leukaemia
     Route: 065

REACTIONS (3)
  - Acute myeloid leukaemia recurrent [Recovering/Resolving]
  - Hepatic enzyme increased [Not Recovered/Not Resolved]
  - Mucosal disorder [Recovered/Resolved]
